FAERS Safety Report 15289994 (Version 1)
Quarter: 2018Q3

REPORT INFORMATION
  Report Type: Spontaneous
  Country: US (occurrence: US)
  Receive Date: 20180817
  Receipt Date: 20180817
  Transmission Date: 20181010
  Serious: Yes (Hospitalization)
  Sender: FDA-Public Use
  Company Number: US-SA-2018SA224151

PATIENT
  Age: 51 Year
  Sex: Female

DRUGS (24)
  1. PREDNISONE. [Concomitant]
     Active Substance: PREDNISONE
  2. FLONASE [Concomitant]
     Active Substance: FLUTICASONE PROPIONATE
  3. ISOSORBIDE MONONITRATE. [Concomitant]
     Active Substance: ISOSORBIDE MONONITRATE
  4. AUBAGIO [Suspect]
     Active Substance: TERIFLUNOMIDE
     Dosage: 14 MG, QD
     Route: 048
     Dates: start: 20160921
  5. PROTONIX [OMEPRAZOLE] [Concomitant]
  6. NAPROXEN. [Concomitant]
     Active Substance: NAPROXEN
  7. MECLIZINE [MECLOZINE] [Concomitant]
  8. BACLOFEN. [Concomitant]
     Active Substance: BACLOFEN
  9. DIAZEPAM. [Concomitant]
     Active Substance: DIAZEPAM
  10. ZOLPIDEM TARTRATE. [Concomitant]
     Active Substance: ZOLPIDEM TARTRATE
  11. ZOFRAN [ONDANSETRON] [Concomitant]
  12. LACTULOSE. [Concomitant]
     Active Substance: LACTULOSE
  13. MIRALAX [Concomitant]
     Active Substance: POLYETHYLENE GLYCOL 3350
  14. CLONAZEPAM. [Concomitant]
     Active Substance: CLONAZEPAM
  15. CYMBALTA [Concomitant]
     Active Substance: DULOXETINE HYDROCHLORIDE
  16. SPIRIVA [Concomitant]
     Active Substance: TIOTROPIUM BROMIDE MONOHYDRATE
  17. AUBAGIO [Suspect]
     Active Substance: TERIFLUNOMIDE
     Dosage: 14 MG, QD
     Route: 048
  18. ENTRESTO [Concomitant]
     Active Substance: SACUBITRIL\VALSARTAN
  19. LISINOPRIL. [Concomitant]
     Active Substance: LISINOPRIL
  20. AMITRIPTYLINE HCL [Concomitant]
     Active Substance: AMITRIPTYLINE
  21. PRAMIPEXOLE DIHYDROCHLORIDE. [Concomitant]
     Active Substance: PRAMIPEXOLE DIHYDROCHLORIDE
  22. VITAMIN D [Concomitant]
     Active Substance: CHOLECALCIFEROL
  23. VICODIN [Concomitant]
     Active Substance: ACETAMINOPHEN\HYDROCODONE BITARTRATE
  24. CARVEDILOL. [Concomitant]
     Active Substance: CARVEDILOL

REACTIONS (3)
  - Dehydration [Unknown]
  - Blood pressure decreased [Unknown]
  - Drug dose omission [Unknown]
